FAERS Safety Report 8281368-5 (Version None)
Quarter: 2012Q2

REPORT INFORMATION
  Report Type: 
  Country: None (occurrence: None)
  Receive Date: 20120413
  Receipt Date: 20120410
  Transmission Date: 20120825
  Serious: Yes (Other)
  Sender: FDA-Public Use
  Company Number: US-PFIZER INC-2012047511

PATIENT
  Sex: Female
  Weight: 90.703 kg

DRUGS (4)
  1. GLYBURIDE [Concomitant]
     Dosage: UNK
  2. ACIPHEX [Concomitant]
     Dosage: UNK
  3. LORTAB [Concomitant]
     Dosage: UNK
  4. LYRICA [Suspect]
     Indication: FIBROMYALGIA
     Dosage: 75 MG, 2X/DAY
     Route: 048

REACTIONS (3)
  - SWOLLEN TONGUE [None]
  - OEDEMA PERIPHERAL [None]
  - SWELLING FACE [None]
